FAERS Safety Report 9406400 (Version 1)
Quarter: 2013Q3

REPORT INFORMATION
  Report Type: Spontaneous
  Country: US (occurrence: US)
  Receive Date: 20130718
  Receipt Date: 20130718
  Transmission Date: 20140515
  Serious: Yes (Other)
  Sender: FDA-Public Use
  Company Number: US-AMGEN-USASP2013049010

PATIENT
  Sex: Female

DRUGS (2)
  1. PROLIA [Suspect]
     Indication: OSTEOPOROSIS POSTMENOPAUSAL
     Dosage: UNK
     Dates: start: 20130509
  2. XANAX [Concomitant]

REACTIONS (10)
  - Pain [Recovering/Resolving]
  - Malaise [Unknown]
  - Discomfort [Unknown]
  - Dysstasia [Recovering/Resolving]
  - Pollakiuria [Unknown]
  - Chest pain [Unknown]
  - Back pain [Recovering/Resolving]
  - Urinary retention [Unknown]
  - Palpitations [Unknown]
  - Pain in extremity [Recovering/Resolving]
